FAERS Safety Report 8953813 (Version 2)
Quarter: 2012Q4

REPORT INFORMATION
  Report Type: Report from Study
  Country: US (occurrence: GB)
  Receive Date: 20121206
  Receipt Date: 20121217
  Transmission Date: 20130627
  Serious: Yes (Other)
  Sender: FDA-Public Use
  Company Number: US-ABBOTT-12P-163-1017277-00

PATIENT
  Age: 35 Year
  Sex: Female

DRUGS (2)
  1. KALETRA [Suspect]
     Indication: ANTIRETROVIRAL THERAPY
     Dosage: 4 tab/caps daily
     Route: 048
     Dates: start: 20120529
  2. COMBIVIR [Suspect]
     Indication: ANTIRETROVIRAL THERAPY
     Dosage: 2 tab/caps daily
     Route: 048
     Dates: start: 20120529

REACTIONS (1)
  - Stillbirth [Unknown]
